FAERS Safety Report 5002251-4 (Version None)
Quarter: 2006Q2

REPORT INFORMATION
  Report Type: 
  Country: None (occurrence: None)
  Receive Date: 20060512
  Receipt Date: 20060503
  Transmission Date: 20061013
  Serious: Yes (Life-Threatening)
  Sender: FDA-Public Use
  Company Number: GXKR2006DE02267

PATIENT
  Age: 49 Year
  Sex: Female
  Weight: 68 kg

DRUGS (1)
  1. AMITRIPTYLINE (NGX) (AMITRIPTYLINE) UNKNOWN, 50 MG [Suspect]
     Indication: DEPRESSION
     Dosage: 50 MG,

REACTIONS (17)
  - AGGRESSION [None]
  - AGITATION [None]
  - ARRHYTHMIA [None]
  - CARDIAC ARREST [None]
  - HEART RATE INCREASED [None]
  - HYPERTENSION [None]
  - HYPOCALCAEMIA [None]
  - HYPOKALAEMIA [None]
  - HYPOMAGNESAEMIA [None]
  - HYPONATRAEMIA [None]
  - HYPOTENSION [None]
  - INTENTIONAL OVERDOSE [None]
  - METABOLIC ACIDOSIS [None]
  - SOMNOLENCE [None]
  - SUICIDE ATTEMPT [None]
  - VENTRICULAR FIBRILLATION [None]
  - VOMITING [None]
